FAERS Safety Report 7105660-2 (Version None)
Quarter: 2010Q4

REPORT INFORMATION
  Report Type: 
  Country: None (occurrence: None)
  Receive Date: 20101116
  Receipt Date: 20101111
  Transmission Date: 20110411
  Serious: Yes (Other)
  Sender: FDA-Public Use
  Company Number: US-BAYER-201040723NA

PATIENT
  Age: 36 Year
  Sex: Female

DRUGS (4)
  1. YASMIN [Suspect]
     Indication: PRODUCT USED FOR UNKNOWN INDICATION
     Route: 048
     Dates: start: 20050301, end: 20050601
  2. YASMIN [Suspect]
     Route: 048
     Dates: start: 20070101, end: 20080601
  3. OCELLA [Suspect]
     Indication: PRODUCT USED FOR UNKNOWN INDICATION
     Route: 048
     Dates: start: 20080701, end: 20080801
  4. OCELLA [Suspect]
     Route: 048
     Dates: start: 20090101, end: 20090801

REACTIONS (1)
  - GALLBLADDER INJURY [None]
